FAERS Safety Report 6085295-3 (Version None)
Quarter: 2009Q1

REPORT INFORMATION
  Report Type: 
  Country: None (occurrence: None)
  Receive Date: 20090218
  Receipt Date: 20081114
  Transmission Date: 20090719
  Serious: Yes (Life-Threatening, Hospitalization)
  Sender: FDA-Public Use
  Company Number: 2008PV000087

PATIENT
  Age: 39 Year
  Sex: Male
  Weight: 81 kg

DRUGS (9)
  1. DEPOCYT [Suspect]
     Indication: METASTASES TO MENINGES
     Dosage: 50 MG; QD; INTH
     Route: 037
     Dates: start: 20080905, end: 20081018
  2. SOLU-MEDROL [Suspect]
     Dosage: 50 MG; QD; IV
     Route: 042
     Dates: start: 20080902, end: 20081022
  3. VINCRISTINE SULFATE [Suspect]
     Dosage: 2 MG, QD; IV
     Route: 042
     Dates: start: 20080902, end: 20080925
  4. METHOTREXATE [Suspect]
     Dosage: 3000 MG; QD; IV
     Route: 042
     Dates: start: 20080904, end: 20081017
  5. ADRIBLASTINE (DOXORUBICIN HYDROCHLORIDE) [Suspect]
     Dosage: 60 MG; QD; IV
     Route: 042
     Dates: start: 20080905, end: 20080926
  6. ENDOXAN /00021101/ (CYCLOPHOSPHAMIDE) [Suspect]
     Dosage: 1000 MG; QD; IV
     Route: 042
     Dates: start: 20080905, end: 20080928
  7. DEPO-MEDROL [Suspect]
     Dosage: 80 MG; QD;PO
     Route: 048
     Dates: start: 20080908, end: 20080930
  8. RITUXIMAB (RITUXIMAB) [Suspect]
     Indication: MENINGITIS BACTERIAL
     Dosage: 750 MG;QD;IV
     Route: 042
     Dates: start: 20080901, end: 20081016
  9. FOLIC ACID [Concomitant]

REACTIONS (4)
  - FEBRILE BONE MARROW APLASIA [None]
  - HEADACHE [None]
  - MENINGITIS [None]
  - PURULENCE [None]
